FAERS Safety Report 23808443 (Version 1)
Quarter: 2024Q2

REPORT INFORMATION
  Report Type: Spontaneous
  Country: IL (occurrence: IL)
  Receive Date: 20240502
  Receipt Date: 20240502
  Transmission Date: 20240716
  Serious: Yes (Other)
  Sender: FDA-Public Use
  Company Number: IL-NOVITIUMPHARMA-2024ILNVP00666

PATIENT
  Sex: Male

DRUGS (9)
  1. PREDNISONE [Suspect]
     Active Substance: PREDNISONE
     Indication: Combined immunodeficiency
     Dosage: CHRONIC PREDNISONE USE
  2. ACYCLOVIR [Suspect]
     Active Substance: ACYCLOVIR
     Indication: Varicella zoster virus infection
  3. MYCOPHENOLATE MOFETIL [Concomitant]
     Active Substance: MYCOPHENOLATE MOFETIL
     Indication: Combined immunodeficiency
  4. Immunoglobulin [Concomitant]
     Indication: Combined immunodeficiency
  5. DAPSONE [Concomitant]
     Active Substance: DAPSONE
     Indication: Granuloma
  6. HYDROXYCHLOROQUINE [Concomitant]
     Active Substance: HYDROXYCHLOROQUINE
     Indication: Granuloma
  7. INFLIXIMAB [Concomitant]
     Active Substance: INFLIXIMAB
     Indication: Granuloma
  8. CYCLOSPORINE [Concomitant]
     Active Substance: CYCLOSPORINE
     Indication: Granuloma
  9. METHOTREXATE [Concomitant]
     Active Substance: METHOTREXATE
     Indication: Granuloma

REACTIONS (6)
  - Retinal detachment [Unknown]
  - Growth retardation [Unknown]
  - Cataract [Unknown]
  - Central obesity [Unknown]
  - Hypertension [Unknown]
  - Drug ineffective [Unknown]
